FAERS Safety Report 5649210-6 (Version None)
Quarter: 2008Q1

REPORT INFORMATION
  Report Type: 
  Country: None (occurrence: None)
  Receive Date: 20080304
  Receipt Date: 20071126
  Transmission Date: 20080703
  Serious: No
  Sender: FDA-Public Use
  Company Number: US-BAYER-200715637NA

PATIENT
  Age: 69 Year
  Sex: Female
  Weight: 55 kg

DRUGS (1)
  1. MAGNEVIST [Suspect]
     Indication: NUCLEAR MAGNETIC RESONANCE IMAGING
     Dosage: AS USED: 11 ML  UNIT DOSE: 11 ML
     Route: 042
     Dates: start: 20070929, end: 20070929

REACTIONS (4)
  - ARTHRALGIA [None]
  - EXTRAVASATION [None]
  - JOINT SWELLING [None]
  - LIMB DISCOMFORT [None]
